FAERS Safety Report 5106575-1 (Version None)
Quarter: 2006Q3

REPORT INFORMATION
  Report Type: 
  Country: None (occurrence: None)
  Receive Date: 20060731
  Receipt Date: 20060123
  Transmission Date: 20061208
  Serious: Yes (Other)
  Sender: FDA-Public Use
  Company Number: US-JNJFOC-20060103456

PATIENT
  Age: 41 Year
  Sex: Female

DRUGS (1)
  1. RISPERDAL [Suspect]
     Indication: BIPOLAR DISORDER
     Dosage: 0.25 MG, 1 I 1 DAY, ORAL
     Route: 048
     Dates: start: 20010101

REACTIONS (4)
  - ADVERSE EVENT [None]
  - HYPOGLYCAEMIA [None]
  - VISUAL DISTURBANCE [None]
  - WEIGHT INCREASED [None]
